FAERS Safety Report 11627929 (Version 1)
Quarter: 2015Q4

REPORT INFORMATION
  Report Type: Spontaneous
  Country: US (occurrence: None)
  Receive Date: 20151013
  Receipt Date: 20151013
  Transmission Date: 20160304
  Serious: Yes (Disabling, Other)
  Sender: FDA-Public Use
  Company Number: None

PATIENT
  Age: 48 Year
  Sex: Female
  Weight: 83.01 kg

DRUGS (1)
  1. PREDNISONE 5 MG [Suspect]
     Active Substance: PREDNISONE
     Indication: ECZEMA
     Dosage: 8 PILLS TAPERING TO 1
     Route: 048

REACTIONS (3)
  - Headache [None]
  - Alopecia [None]
  - Migraine [None]

NARRATIVE: CASE EVENT DATE: 20151007
